FAERS Safety Report 9799411 (Version 2)
Quarter: 2014Q1

REPORT INFORMATION
  Report Type: Report from Study
  Country: US (occurrence: US)
  Receive Date: 20140106
  Receipt Date: 20140117
  Transmission Date: 20141002
  Serious: Yes (Death)
  Sender: FDA-Public Use
  Company Number: US-ACTELION-A-NJ2013-93073

PATIENT
  Age: 31 Year
  Sex: Female

DRUGS (2)
  1. VELETRI [Suspect]
     Indication: PULMONARY ARTERIAL HYPERTENSION
     Dosage: 34 NG/KG, PER MIN
     Route: 042
     Dates: start: 201306
  2. VELETRI [Suspect]
     Dosage: 72 NG/KG, PER MIN
     Route: 042
     Dates: end: 20131211

REACTIONS (1)
  - Death [Fatal]
